FAERS Safety Report 13766907 (Version 1)
Quarter: 2017Q3

REPORT INFORMATION
  Report Type: Spontaneous
  Country: US (occurrence: US)
  Receive Date: 20170719
  Receipt Date: 20170719
  Transmission Date: 20171127
  Serious: No
  Sender: FDA-Public Use
  Company Number: None

PATIENT
  Age: 66 Year
  Sex: Female
  Weight: 56.25 kg

DRUGS (9)
  1. FLEXERIL [Concomitant]
     Active Substance: CYCLOBENZAPRINE HYDROCHLORIDE
  2. RESTERIL [Concomitant]
  3. PROLIA [Suspect]
     Active Substance: DENOSUMAB
     Indication: OSTEOPOROSIS
     Dosage: ?     OTHER STRENGTH:MG;QUANTITY:1 INJECTION(S);OTHER FREQUENCY:6 MONTHS;?
     Route: 030
     Dates: start: 20170606
  4. MAGNESIUM [Concomitant]
     Active Substance: MAGNESIUM
  5. ZINC. [Concomitant]
     Active Substance: ZINC
  6. VITAMIN C [Concomitant]
     Active Substance: ASCORBIC ACID
  7. CALCIUM [Concomitant]
     Active Substance: CALCIUM
  8. SELENIUM [Concomitant]
     Active Substance: SELENIUM
  9. VITAMIN D [Concomitant]
     Active Substance: CHOLECALCIFEROL

REACTIONS (4)
  - Headache [None]
  - Toothache [None]
  - Ear pain [None]
  - Pain in jaw [None]

NARRATIVE: CASE EVENT DATE: 20170614
